FAERS Safety Report 9406438 (Version 1)
Quarter: 2013Q3

REPORT INFORMATION
  Report Type: Spontaneous
  Country: DE (occurrence: DE)
  Receive Date: 20130718
  Receipt Date: 20130718
  Transmission Date: 20140515
  Serious: Yes (Other)
  Sender: FDA-Public Use
  Company Number: DE-AMGEN-DEUSP2013049929

PATIENT
  Age: 83 Year
  Sex: Female

DRUGS (7)
  1. ENBREL [Suspect]
     Indication: RHEUMATOID ARTHRITIS
     Dosage: 50 MG, WEEKLY
     Route: 065
     Dates: start: 20120802
  2. PANTOZOL                           /01263204/ [Concomitant]
     Dosage: UNK, AS NEEDED
  3. DELIX                              /00885601/ [Concomitant]
     Dosage: 2.5 (UNIT UNKNOWN), UNK
  4. VIGANTOLETTEN [Concomitant]
     Dosage: UNK
  5. DECORTIN [Concomitant]
     Dosage: 15 MG, UNK
  6. COUMADIN                           /00014802/ [Concomitant]
     Dosage: UNK
  7. MARCUMAR [Concomitant]
     Dosage: UNK

REACTIONS (1)
  - Rheumatoid arthritis [Unknown]
